FAERS Safety Report 4845288-8 (Version None)
Quarter: 2005Q4

REPORT INFORMATION
  Report Type: 
  Country: None (occurrence: None)
  Receive Date: 20051129
  Receipt Date: 20051114
  Transmission Date: 20060501
  Serious: Yes (Other)
  Sender: FDA-Public Use
  Company Number: USA0510111877

PATIENT
  Age: 70 Year
  Sex: Female

DRUGS (3)
  1. FORTEO [Suspect]
     Dosage: SUBCUTANEOUS
     Route: 058
     Dates: start: 20050501
  2. FORTEO PEN,250MCG/ML (3ML) (FORTEO PEN 250MCG/ML (3ML)) PEN, DISPOSABL [Concomitant]
  3. FORTEO PEN (250MCG/ML) (FORTEO PEN 250MCG/ML (3ML)) PEN, DISPOSABLE [Concomitant]

REACTIONS (3)
  - BONE DISORDER [None]
  - PELVIC FRACTURE [None]
  - PHARMACEUTICAL PRODUCT COMPLAINT [None]
